FAERS Safety Report 5345426-7 (Version None)
Quarter: 2007Q2

REPORT INFORMATION
  Report Type: 
  Country: None (occurrence: None)
  Receive Date: 20070426
  Receipt Date: 20070129
  Transmission Date: 20071010
  Serious: Yes (Hospitalization)
  Sender: FDA-Public Use
  Company Number: 2007-BP-00364BP

PATIENT
  Age: 68 Year
  Sex: Male

DRUGS (3)
  1. APTIVUS RITONAVIR CAPSULES (TIPRANAVIR /RITONAVIR) [Suspect]
     Indication: HIV INFECTION
     Dosage: SEE TEXT, TPV/RTV 250 MG/100 MG) PO
     Route: 048
     Dates: start: 20051201
  2. ZIAGEN [Suspect]
     Indication: HIV INFECTION
  3. SUSTIVA [Suspect]

REACTIONS (4)
  - DIARRHOEA [None]
  - LIVER FUNCTION TEST ABNORMAL [None]
  - PLATELET COUNT DECREASED [None]
  - THROMBOCYTOPENIA [None]
